FAERS Safety Report 4551054-3 (Version None)
Quarter: 2005Q1

REPORT INFORMATION
  Report Type: 
  Country: None (occurrence: None)
  Receive Date: 20050113
  Receipt Date: 20041025
  Transmission Date: 20050727
  Serious: No
  Sender: FDA-Public Use
  Company Number: US-BRISTOL-MYERS SQUIBB COMPANY-12744686

PATIENT
  Age: 49 Year
  Sex: Female
  Weight: 79 kg

DRUGS (1)
  1. DESYREL [Suspect]
     Indication: DEPRESSION
     Route: 048
     Dates: start: 19880101

REACTIONS (1)
  - INSOMNIA [None]
